FAERS Safety Report 17992191 (Version 5)
Quarter: 2020Q4

REPORT INFORMATION
  Report Type: Report from Study
  Country: SA (occurrence: SA)
  Receive Date: 20200708
  Receipt Date: 20201125
  Transmission Date: 20210113
  Serious: Yes (Other)
  Sender: FDA-Public Use
  Company Number: SA-CELLTRION INC.-2020SA023919

PATIENT

DRUGS (26)
  1. DIPHENHYDRAMINE. [Concomitant]
     Active Substance: DIPHENHYDRAMINE
     Dosage: 25 MG (25 MG, 1 IN 1 D)
     Route: 048
     Dates: start: 20191027, end: 20191027
  2. DIPHENHYDRAMINE. [Concomitant]
     Active Substance: DIPHENHYDRAMINE
     Dosage: 25 MG (25 MG, 1 IN 1 D)
     Route: 048
     Dates: start: 20191124, end: 20191124
  3. MIDAZOLAM. [Concomitant]
     Active Substance: MIDAZOLAM
     Indication: COLONOSCOPY
     Dosage: 3 MG (3 MG, 1 IN 1 D)
     Route: 042
     Dates: start: 20190704, end: 20190704
  4. ESOMEPRAZOLE. [Concomitant]
     Active Substance: ESOMEPRAZOLE MAGNESIUM
     Dosage: 40 MG, (40 MG, 1 IN 1 D)
     Route: 048
     Dates: start: 20190703, end: 20191019
  5. ACETAMINOPHEN. [Concomitant]
     Active Substance: ACETAMINOPHEN
     Indication: PREMEDICATION
     Dosage: 1000 MG (1000 MG, 1 IN 1 D)
     Route: 048
     Dates: start: 20190611, end: 20190611
  6. HYDROCORTISONE. [Concomitant]
     Active Substance: HYDROCORTISONE
     Indication: PREMEDICATION
     Dosage: 100 MG (100 MG, 1 IN 1 D)
     Route: 042
     Dates: start: 20190611, end: 20190611
  7. METHYLPREDNISOLONE SODIUM SUCCINATE. [Suspect]
     Active Substance: METHYLPREDNISOLONE SODIUM SUCCINATE
     Indication: PRODUCT USED FOR UNKNOWN INDICATION
     Dosage: UNK
     Dates: start: 20190702, end: 20190702
  8. ACETAMINOPHEN. [Concomitant]
     Active Substance: ACETAMINOPHEN
     Dosage: 1000 MG (1000 MG, 1 IN 1 D)
     Route: 048
     Dates: start: 20190709, end: 20190709
  9. REMSIMA [Suspect]
     Active Substance: INFLIXIMAB
     Indication: COLITIS ULCERATIVE
     Dosage: 825 MG (10 MG/KG)
     Route: 042
     Dates: start: 20190611, end: 20190611
  10. ESOMEPRAZOLE. [Concomitant]
     Active Substance: ESOMEPRAZOLE MAGNESIUM
     Indication: GASTROOESOPHAGEAL REFLUX PROPHYLAXIS
     Dosage: UNK
     Dates: start: 20190703
  11. HYDROCORTISONE. [Concomitant]
     Active Substance: HYDROCORTISONE
     Dosage: 100 MG (100 MG, 1 IN 1 D)
     Route: 042
     Dates: start: 20191027, end: 20191027
  12. HYDROCORTISONE. [Concomitant]
     Active Substance: HYDROCORTISONE
     Dosage: 100 MG (100 MG, 1 IN 1 D)
     Route: 042
     Dates: start: 20190709, end: 20190709
  13. REMSIMA [Suspect]
     Active Substance: INFLIXIMAB
     Dosage: 840 MG
     Route: 042
     Dates: start: 20190709, end: 20190709
  14. ACETAMINOPHEN. [Concomitant]
     Active Substance: ACETAMINOPHEN
     Dosage: 1000 MG (1000 MG, 1 IN 1 D)
     Route: 048
     Dates: start: 20191124, end: 20191124
  15. RANITIDINE. [Concomitant]
     Active Substance: RANITIDINE
     Indication: GASTROOESOPHAGEAL REFLUX DISEASE
     Dosage: 50 MG (50 MG, 1 IN 1 D)
     Route: 042
     Dates: start: 20190703, end: 20190703
  16. MORPHINE SULFATE. [Concomitant]
     Active Substance: MORPHINE SULFATE
     Indication: ABDOMINAL PAIN UPPER
     Dosage: 10 MILLIGRAM/MILLILITERS (10 MILLIGRAM/MILLILITERS,1 IN 1 D)
     Route: 042
     Dates: start: 20190703, end: 20190703
  17. FENTANYL CITRATE. [Concomitant]
     Active Substance: FENTANYL CITRATE
     Dosage: 50 MICROGRAM, (50 MCG, 1 IN 1 D)
     Route: 030
     Dates: start: 20190704, end: 20190704
  18. REMSIMA [Suspect]
     Active Substance: INFLIXIMAB
     Dosage: 840 MG
     Route: 042
     Dates: start: 20191124, end: 20191124
  19. HYDROCORTISONE. [Concomitant]
     Active Substance: HYDROCORTISONE
     Dosage: 100 MG (100 MG, 1 IN 1 D)
     Route: 042
     Dates: start: 20191124, end: 20191124
  20. GRANISETRON [Concomitant]
     Active Substance: GRANISETRON
     Indication: NAUSEA
     Dosage: 0.1 MILLIGRAM PER MILLILITRE (0.1 MILLIGRAM/MILLILITERS, 1 IN 1 D)
     Route: 042
     Dates: start: 20190703, end: 20190703
  21. REMSIMA [Suspect]
     Active Substance: INFLIXIMAB
     Dosage: 840 MG
     Route: 042
     Dates: start: 20191027, end: 20191027
  22. ACETAMINOPHEN. [Concomitant]
     Active Substance: ACETAMINOPHEN
     Dosage: 1000 MG (1000 MG, 1 IN 1 D)
     Route: 048
     Dates: start: 20191027, end: 20191027
  23. DIPHENHYDRAMINE. [Concomitant]
     Active Substance: DIPHENHYDRAMINE
     Indication: PREMEDICATION
     Dosage: 25 MG (25 MG, 1 IN 1 D)
     Route: 048
     Dates: start: 20190611, end: 20190611
  24. DIPHENHYDRAMINE. [Concomitant]
     Active Substance: DIPHENHYDRAMINE
     Dosage: 25 MG (25 MG, 1 IN 1 D)
     Route: 048
     Dates: start: 20190709, end: 20190709
  25. FENTANYL CITRATE. [Concomitant]
     Active Substance: FENTANYL CITRATE
     Indication: COLONOSCOPY
     Dosage: 50 MICROGRAM, (50 MCG, 1 IN 1 D)
     Route: 042
     Dates: start: 20190704, end: 20190704
  26. ESOMEPRAZOLE. [Concomitant]
     Active Substance: ESOMEPRAZOLE MAGNESIUM
     Dosage: 40 MG, (40 MG, 1 IN 1 D)
     Route: 048
     Dates: start: 20191124

REACTIONS (3)
  - Haematemesis [Recovered/Resolved]
  - Off label use [Unknown]
  - Overdose [Unknown]

NARRATIVE: CASE EVENT DATE: 20191124
